FAERS Safety Report 9788492 (Version 1)
Quarter: 2013Q4

REPORT INFORMATION
  Report Type: Spontaneous
  Country: FR (occurrence: FR)
  Receive Date: 20131230
  Receipt Date: 20131230
  Transmission Date: 20140711
  Serious: Yes (Life-Threatening, Hospitalization)
  Sender: FDA-Public Use
  Company Number: PHHY2013FR152093

PATIENT
  Age: 62 Year
  Sex: Female

DRUGS (5)
  1. AFINITOR [Suspect]
     Indication: BREAST CANCER
     Route: 048
     Dates: start: 201311, end: 20131206
  2. AROMASINE [Suspect]
     Dates: start: 201311, end: 20131206
  3. NISISCO [Concomitant]
     Dosage: 160 MG, QD
  4. LEVOTHYROX [Concomitant]
     Dosage: 125 UG, QD
  5. TAHOR [Concomitant]
     Dosage: 10 MG, QD

REACTIONS (4)
  - Electrocardiogram abnormal [Recovered/Resolved]
  - Paraesthesia [Recovered/Resolved]
  - Hypocalcaemia [Recovered/Resolved]
  - Hypokalaemia [Recovered/Resolved]
